FAERS Safety Report 8547064 (Version 4)
Quarter: 2012Q4

REPORT INFORMATION
  Report Type: Report from Study
  Country: JP (occurrence: JP)
  Receive Date: 20120504
  Receipt Date: 20121010
  Transmission Date: 20130627
  Serious: Yes (Hospitalization, Other)
  Sender: FDA-Public Use
  Company Number: JP-ROCHE-1065080

PATIENT
  Age: 85 Year
  Sex: Male

DRUGS (6)
  1. RANIBIZUMAB [Suspect]
     Indication: AGE-RELATED MACULAR DEGENERATION
     Route: 050
     Dates: start: 20111226
  2. RANIBIZUMAB [Suspect]
     Route: 050
     Dates: start: 20120123
  3. RANIBIZUMAB [Suspect]
     Route: 050
     Dates: start: 20120220
  4. RANIBIZUMAB [Suspect]
     Route: 050
     Dates: start: 20120425, end: 20120425
  5. PLATELET AGGREGATION INHIBITORS [Concomitant]
  6. VIGAMOX [Concomitant]
     Route: 065
     Dates: start: 201112, end: 201202

REACTIONS (1)
  - Lacunar infarction [Recovered/Resolved with Sequelae]
